FAERS Safety Report 18033971 (Version 1)
Quarter: 2020Q3

REPORT INFORMATION
  Report Type: Spontaneous
  Country: US (occurrence: US)
  Receive Date: 20200716
  Receipt Date: 20200716
  Transmission Date: 20201103
  Serious: Yes (Other)
  Sender: FDA-Public Use
  Company Number: US-ROCHE-2642599

PATIENT
  Sex: Female

DRUGS (26)
  1. CELECOXIB. [Concomitant]
     Active Substance: CELECOXIB
  2. ESOMEPRAZOLE. [Concomitant]
     Active Substance: ESOMEPRAZOLE MAGNESIUM
  3. MELATONIN [Concomitant]
     Active Substance: MELATONIN
  4. BACLOFEN. [Concomitant]
     Active Substance: BACLOFEN
  5. DIGOX [Concomitant]
     Active Substance: DIGOXIN
  6. DILTIAZEM. [Concomitant]
     Active Substance: DILTIAZEM
  7. ENTECAVIR. [Concomitant]
     Active Substance: ENTECAVIR
  8. IPRATROPIUM [Concomitant]
     Active Substance: IPRATROPIUM
  9. METOPROLOL TARTRATE;NIFEDIPINE [Concomitant]
  10. PREDNISONE. [Concomitant]
     Active Substance: PREDNISONE
  11. CLAVULANIC ACID [Concomitant]
     Active Substance: CLAVULANIC ACID
  12. GABAPENTINE [Concomitant]
     Active Substance: GABAPENTIN
  13. PRAMIPEXOLE. [Concomitant]
     Active Substance: PRAMIPEXOLE
  14. ALPROZOLAM [Concomitant]
     Active Substance: ALPRAZOLAM
  15. FUROSEMIDE. [Concomitant]
     Active Substance: FUROSEMIDE
  16. METOPROLOL SUCCINATE. [Concomitant]
     Active Substance: METOPROLOL SUCCINATE
  17. ESBRIET [Suspect]
     Active Substance: PIRFENIDONE
     Indication: IDIOPATHIC PULMONARY FIBROSIS
     Route: 048
     Dates: start: 20200110
  18. METHOCARBAMOL. [Concomitant]
     Active Substance: METHOCARBAMOL
  19. MIRTAZAPINE. [Concomitant]
     Active Substance: MIRTAZAPINE
  20. ONDANSETRON [Concomitant]
     Active Substance: ONDANSETRON
  21. AMANTADINE. [Concomitant]
     Active Substance: AMANTADINE HYDROCHLORIDE
  22. AMOXIKLAV [Concomitant]
  23. CYCLOBENZAPRINE. [Concomitant]
     Active Substance: CYCLOBENZAPRINE
  24. ELIQUIS [Concomitant]
     Active Substance: APIXABAN
  25. MAGNESIUM CLOFIBRATE [Concomitant]
  26. LEVOTHYROXINE. [Concomitant]
     Active Substance: LEVOTHYROXINE

REACTIONS (2)
  - Product dose omission issue [Unknown]
  - Infection [Unknown]
